FAERS Safety Report 25548244 (Version 1)
Quarter: 2025Q3

REPORT INFORMATION
  Report Type: Spontaneous
  Country: JP (occurrence: JP)
  Receive Date: 20250714
  Receipt Date: 20250714
  Transmission Date: 20251020
  Serious: Yes (Other)
  Sender: ANI
  Company Number: JP-ANIPHARMA-023588

PATIENT
  Age: 32 Year
  Sex: Male

DRUGS (9)
  1. HYDROCORTISONE PROBUTATE [Suspect]
     Active Substance: HYDROCORTISONE PROBUTATE
     Indication: Dermatitis atopic
     Dates: start: 19930716
  2. HYDROCORTISONE ACETATE [Concomitant]
     Active Substance: HYDROCORTISONE ACETATE
     Indication: Dermatitis atopic
     Dates: start: 19951208, end: 200308
  3. DEXA [Concomitant]
     Indication: Product used for unknown indication
  4. NEO-MEDROL EYE-EAR [Concomitant]
     Indication: Product used for unknown indication
  5. DIFLUCORTOLONE VALERATE [Concomitant]
     Active Substance: DIFLUCORTOLONE VALERATE
     Indication: Product used for unknown indication
  6. DIFLUCORTOLONE VALERATE [Concomitant]
     Active Substance: DIFLUCORTOLONE VALERATE
     Indication: Product used for unknown indication
  7. DEXAMETHASONE VALERATE [Concomitant]
     Active Substance: DEXAMETHASONE VALERATE
     Indication: Product used for unknown indication
  8. MYSER [Concomitant]
     Indication: Product used for unknown indication
  9. LIDOMEX KOWA [Concomitant]
     Indication: Product used for unknown indication

REACTIONS (1)
  - Glaucoma [Unknown]

NARRATIVE: CASE EVENT DATE: 20100806
